FAERS Safety Report 5931240-8 (Version None)
Quarter: 2008Q4

REPORT INFORMATION
  Report Type: 
  Country: None (occurrence: None)
  Receive Date: 20081024
  Receipt Date: 20081024
  Transmission Date: 20090506
  Serious: Yes (Death)
  Sender: FDA-Public Use
  Company Number: None

PATIENT
  Sex: Male
  Weight: 102 kg

DRUGS (3)
  1. PEG-INTRON [Suspect]
     Indication: HEPATITIS
     Dosage: 0; ONCE WEEKLY:  SUBCUTANEOUS INJECTION
     Dates: start: 20080711, end: 20080814
  2. REBETOL [Suspect]
     Dosage: O; TWICE DAILY; ORAL - CAPSULES
     Dates: start: 20080711, end: 20080814
  3. PROCRIT [Suspect]
     Dosage: 0 SUBCUTANEOUS INJECTION

REACTIONS (8)
  - CONTINUOUS HAEMODIAFILTRATION [None]
  - GENERAL PHYSICAL HEALTH DETERIORATION [None]
  - IRON OVERLOAD [None]
  - ISCHAEMIA [None]
  - LIVER TRANSPLANT [None]
  - POST PROCEDURAL COMPLICATION [None]
  - PROCEDURAL COMPLICATION [None]
  - VENTRICULAR FAILURE [None]
